FAERS Safety Report 4466435-6 (Version None)
Quarter: 2004Q4

REPORT INFORMATION
  Report Type: 
  Country: None (occurrence: None)
  Receive Date: 20041005
  Receipt Date: 20040930
  Transmission Date: 20050328
  Serious: Yes (Hospitalization)
  Sender: FDA-Public Use
  Company Number: DE-MERCK-0409DEU00203

PATIENT
  Age: 71 Year
  Sex: Male
  Weight: 77 kg

DRUGS (11)
  1. FOSAMAX [Suspect]
     Indication: OSTEOPOROSIS
     Route: 048
     Dates: start: 20030101
  2. ATORVASTATIN CALCIUM [Suspect]
     Indication: HYPERLIPIDAEMIA
     Route: 048
  3. CARVEDILOL [Concomitant]
     Indication: CORONARY ARTERY DISEASE
     Route: 048
  4. FLUTICASONE PROPIONATE AND SALMETEROL XINAFOATE [Concomitant]
     Indication: BRONCHITIS CHRONIC
     Route: 055
  5. INSULIN ASPART [Concomitant]
     Indication: DIABETES MELLITUS
     Route: 058
  6. INSULIN GLARGINE [Concomitant]
     Indication: DIABETES MELLITUS
     Route: 058
  7. PHENPROCOUMON [Suspect]
     Indication: THROMBOSIS PROPHYLAXIS
     Route: 048
     Dates: start: 20030501, end: 20040402
  8. RAMIPRIL [Concomitant]
     Indication: HYPERTENSION
     Route: 048
  9. SPIRONOLACTONE [Suspect]
     Indication: OEDEMA
     Route: 048
  10. THEOPHYLLINE [Concomitant]
     Indication: BRONCHITIS CHRONIC
     Route: 048
     Dates: end: 20040402
  11. TORSEMIDE [Concomitant]
     Indication: HYPERTENSION
     Route: 048

REACTIONS (10)
  - DRUG INTERACTION [None]
  - DRUG INTERACTION POTENTIATION [None]
  - GASTRITIS EROSIVE [None]
  - GASTRODUODENITIS HAEMORRHAGIC [None]
  - HAEMATOCRIT DECREASED [None]
  - HAEMOGLOBIN DECREASED [None]
  - HIATUS HERNIA [None]
  - HYPERHIDROSIS [None]
  - OEDEMA [None]
  - REFLUX OESOPHAGITIS [None]
